FAERS Safety Report 9201174 (Version 3)
Quarter: 2013Q2

REPORT INFORMATION
  Report Type: Spontaneous
  Country: US (occurrence: US)
  Receive Date: 20130401
  Receipt Date: 20130606
  Transmission Date: 20140414
  Serious: Yes (Other)
  Sender: FDA-Public Use
  Company Number: PHEH2013US006884

PATIENT
  Sex: Female

DRUGS (1)
  1. FEMARA [Suspect]
     Indication: INVASIVE DUCTAL BREAST CARCINOMA
     Dosage: UNK UKN, UNK

REACTIONS (6)
  - Visual impairment [Unknown]
  - Amnesia [Unknown]
  - Haematuria [Unknown]
  - Bone disorder [Unknown]
  - Malaise [Unknown]
  - Bone pain [Unknown]
